FAERS Safety Report 4386977-1 (Version None)
Quarter: 2004Q2

REPORT INFORMATION
  Report Type: 
  Country: None (occurrence: None)
  Receive Date: 20040623
  Receipt Date: 20040609
  Transmission Date: 20050107
  Serious: Yes (Hospitalization)
  Sender: FDA-Public Use
  Company Number: 2004-BP-01306BP

PATIENT
  Age: 75 Year
  Sex: Female

DRUGS (10)
  1. MIRAPEX [Suspect]
     Indication: PARKINSON'S DISEASE
     Dosage: SEE IMAGE
     Route: 048
     Dates: end: 20031101
  2. XANAX [Suspect]
     Indication: ANXIETY
     Dosage: PO
     Route: 048
  3. SINEMET [Concomitant]
  4. LASIX [Concomitant]
  5. ZAROXOLYN [Concomitant]
  6. TOPROL-XL [Concomitant]
  7. CLONIDINE [Concomitant]
  8. VICODIN [Concomitant]
  9. KCL (POTASSIUM CHLORIDE) [Concomitant]
  10. SYNTHROID [Concomitant]

REACTIONS (8)
  - AGGRESSION [None]
  - ANXIETY [None]
  - CONFUSIONAL STATE [None]
  - INSOMNIA [None]
  - MEDICATION ERROR [None]
  - PERSONALITY CHANGE [None]
  - SUSPICIOUSNESS [None]
  - TREMOR [None]
